FAERS Safety Report 8611717 (Version 3)
Quarter: 2014Q2

REPORT INFORMATION
  Report Type: Spontaneous
  Country: US (occurrence: US)
  Receive Date: 20120613
  Receipt Date: 20140401
  Transmission Date: 20141212
  Serious: No
  Sender: FDA-Public Use
  Company Number: US-ASTRAZENECA-2012SE35763

PATIENT
  Age: 57 Year
  Sex: Female
  Weight: 77.1 kg

DRUGS (8)
  1. NEXIUM [Suspect]
     Indication: DYSPEPSIA
     Dosage: ONE TABLET DAILY
     Route: 048
     Dates: start: 2009, end: 201203
  2. NEXIUM [Suspect]
     Indication: DYSPEPSIA
     Route: 048
     Dates: start: 20090211
  3. NEXIUM [Suspect]
     Indication: DYSPEPSIA
     Route: 048
     Dates: start: 20100420
  4. ALPRAZOLAM [Concomitant]
     Dates: start: 20100420
  5. NAPROXEN [Concomitant]
     Dates: start: 20100420
  6. FLUOXETINE [Concomitant]
     Dates: start: 20100126
  7. HYDROCHLOROTHIAZIDE [Concomitant]
     Dates: start: 20100126
  8. RANITIDINE [Concomitant]
     Dates: start: 20110920

REACTIONS (5)
  - Fall [Unknown]
  - Rib fracture [Unknown]
  - Multiple fractures [Unknown]
  - Arthritis [Unknown]
  - Osteoporosis [Unknown]
